FAERS Safety Report 9186915 (Version 1)
Quarter: 2013Q1

REPORT INFORMATION
  Report Type: Spontaneous
  Country: ES (occurrence: ES)
  Receive Date: 20130325
  Receipt Date: 20130325
  Transmission Date: 20140127
  Serious: Yes (Hospitalization)
  Sender: FDA-Public Use
  Company Number: ES-GLAXOSMITHKLINE-B0835266A

PATIENT
  Age: 64 Year
  Sex: Female

DRUGS (6)
  1. SEREVENT [Suspect]
     Indication: CHRONIC OBSTRUCTIVE PULMONARY DISEASE
     Route: 055
     Dates: start: 2007, end: 20120111
  2. SALBUTAMOL [Suspect]
     Indication: CHRONIC OBSTRUCTIVE PULMONARY DISEASE
     Dosage: .5ML TWICE PER DAY
     Route: 055
     Dates: start: 20120104, end: 20120111
  3. DEXAMETHASONE [Suspect]
     Indication: BRAIN CANCER METASTATIC
     Dosage: 4MG FOUR TIMES PER DAY
     Route: 042
     Dates: start: 20120107, end: 20120111
  4. PIPERACILLIN SODIUM (+) TAZOBACTAM SODIUM [Suspect]
     Indication: CHRONIC OBSTRUCTIVE PULMONARY DISEASE
     Route: 042
     Dates: start: 20120107
  5. THEOPHYLLINE [Suspect]
     Indication: CHRONIC OBSTRUCTIVE PULMONARY DISEASE
     Dosage: 200MG TWICE PER DAY
     Route: 065
     Dates: start: 20120103, end: 20120106
  6. ENALAPRIL [Concomitant]
     Indication: HYPERTENSION
     Dosage: 5MG PER DAY
     Route: 048
     Dates: start: 20120103, end: 20120106

REACTIONS (1)
  - Hypokalaemia [Recovered/Resolved]
